FAERS Safety Report 7979949-9 (Version None)
Quarter: 2011Q4

REPORT INFORMATION
  Report Type: 
  Country: None (occurrence: None)
  Receive Date: 20111214
  Receipt Date: 20111212
  Transmission Date: 20120403
  Serious: Yes (Hospitalization, Other)
  Sender: FDA-Public Use
  Company Number: US-TEVA-303536USA

PATIENT
  Sex: Female

DRUGS (6)
  1. CLARAVIS [Suspect]
     Route: 048
     Dates: end: 20110901
  2. ALPRAZOLAM [Concomitant]
  3. BUPROPION HCL [Concomitant]
  4. LEVOTHYROXINE SODIUM [Concomitant]
  5. METFORMIN HCL [Concomitant]
  6. GABAPENTIN [Concomitant]

REACTIONS (2)
  - DEPRESSION [None]
  - SUICIDAL IDEATION [None]
